FAERS Safety Report 4389881-8 (Version None)
Quarter: 2004Q2

REPORT INFORMATION
  Report Type: 
  Country: None (occurrence: None)
  Receive Date: 20040630
  Receipt Date: 20040616
  Transmission Date: 20050107
  Serious: Yes (Death, Disabling, Other)
  Sender: FDA-Public Use
  Company Number: NSADSS2002022915

PATIENT
  Age: 60 Year
  Sex: Male
  Weight: 88.905 kg

DRUGS (7)
  1. REMICADE [Suspect]
     Indication: CROHN'S DISEASE
     Dosage: SEE IMAGE
     Route: 041
     Dates: start: 20020322, end: 20020322
  2. REMICADE [Suspect]
     Indication: CROHN'S DISEASE
     Dosage: SEE IMAGE
     Route: 041
     Dates: start: 20020207
  3. REMICADE [Suspect]
     Indication: CROHN'S DISEASE
     Dosage: SEE IMAGE
     Route: 041
     Dates: start: 20020221
  4. MERCAPTOPURINE [Concomitant]
  5. PREDNISONE TAB [Concomitant]
  6. QUESTRAN [Concomitant]
  7. MESALAMINE [Concomitant]

REACTIONS (3)
  - MESOTHELIOMA [None]
  - PLEURAL EFFUSION [None]
  - SMALL CELL LUNG CANCER METASTATIC [None]
